FAERS Safety Report 9167714 (Version 1)
Quarter: 2013Q1

REPORT INFORMATION
  Report Type: Spontaneous
  Country: CA (occurrence: None)
  Receive Date: 20130304
  Receipt Date: 20130304
  Transmission Date: 20140127
  Serious: Yes (Other)
  Sender: FDA-Public Use
  Company Number: 2013AP003275

PATIENT
  Age: 10 Year
  Sex: Female

DRUGS (5)
  1. VALPROIC ACID (VALPROIC ACID) [Suspect]
     Indication: CONVULSION
  2. TOPIRAMATE (TOPIRAMATE) [Suspect]
     Indication: CONVULSION
  3. CARNITINE (CARNITINE) [Concomitant]
  4. LANSOPRAZOLE (LANSOPRAZOLE) [Concomitant]
  5. CALCIUM CARBONATE (CALCIUM CARBONATE) [Concomitant]

REACTIONS (5)
  - Fanconi syndrome [None]
  - Nephrocalcinosis [None]
  - Osteopenia [None]
  - Metabolic acidosis [None]
  - Hypophosphataemia [None]
